FAERS Safety Report 7423771-9 (Version None)
Quarter: 2011Q1

REPORT INFORMATION
  Report Type: 
  Country: None (occurrence: None)
  Receive Date: 20110331
  Receipt Date: 20110317
  Transmission Date: 20110831
  Serious: Yes (Other)
  Sender: FDA-Public Use
  Company Number: 2011PROUSA00234

PATIENT
  Age: 81 Year
  Sex: Male
  Weight: 89.8 kg

DRUGS (1)
  1. PROVENGE [Suspect]
     Indication: PROSTATE CANCER METASTATIC
     Dosage: 250 ML, SINGLE, INTRAVENOUS
     Route: 042
     Dates: start: 20110217, end: 20110217

REACTIONS (1)
  - SUBCUTANEOUS ABSCESS [None]
